FAERS Safety Report 4501105-7 (Version None)
Quarter: 2004Q4

REPORT INFORMATION
  Report Type: 
  Country: None (occurrence: None)
  Receive Date: 20041109
  Receipt Date: 20041025
  Transmission Date: 20050328
  Serious: Yes (Other)
  Sender: FDA-Public Use
  Company Number: USA030640416

PATIENT
  Age: 67 Year
  Sex: Female
  Weight: 52 kg

DRUGS (7)
  1. FORTEO [Suspect]
     Indication: OSTEOPOROSIS
     Dosage: 20 UG DAY
     Dates: start: 20030625
  2. PRILOSEC [Concomitant]
  3. ALLEGRA-D [Concomitant]
  4. FLONASE [Concomitant]
  5. LIPITOR [Concomitant]
  6. TYLENOL [Concomitant]
  7. TUMS (CALCIUM CARBONATE) [Concomitant]

REACTIONS (13)
  - ARTHRALGIA [None]
  - BACK PAIN [None]
  - BLADDER NEOPLASM [None]
  - CONDITION AGGRAVATED [None]
  - FATIGUE [None]
  - FLATULENCE [None]
  - INJECTION SITE STINGING [None]
  - MEDICAL DEVICE COMPLICATION [None]
  - MUSCLE CRAMP [None]
  - NERVOUSNESS [None]
  - ORAL DISCOMFORT [None]
  - PAIN [None]
  - PHARMACEUTICAL PRODUCT COMPLAINT [None]
